FAERS Safety Report 4578460-5 (Version None)
Quarter: 2005Q1

REPORT INFORMATION
  Report Type: 
  Country: None (occurrence: None)
  Receive Date: 20050209
  Receipt Date: 20050128
  Transmission Date: 20050727
  Serious: Yes (Hospitalization, Other)
  Sender: FDA-Public Use
  Company Number: 2005022624

PATIENT
  Age: 77 Year
  Sex: Female
  Weight: 53.5244 kg

DRUGS (10)
  1. NORPACE [Suspect]
     Indication: HEART RATE IRREGULAR
     Dosage: 150 MG (150 MG, QD INTERVAL; EVERY DAY), ORAL
     Route: 048
     Dates: end: 20040101
  2. NEURONTIN [Suspect]
     Indication: SCIATIC NERVE INJURY
     Dosage: 1200 MG (400 MG, TID INTERVAL:  EVERY DAY), ORAL
     Route: 048
     Dates: start: 20040101, end: 20040101
  3. FUROSEMIDE [Concomitant]
  4. METOPROLOL SUCCINATE [Concomitant]
  5. LEVOTHYROXINE SODIUM [Concomitant]
  6. POTASSIUM CHLORIDE [Concomitant]
  7. ISOSORBIDE MONONITRATE [Concomitant]
  8. ESOMEPRAZOLE (ESOMEPRAZOLE) [Concomitant]
  9. CARISOPRODOL [Concomitant]
  10. GLIPIZIDE [Concomitant]

REACTIONS (5)
  - BACK PAIN [None]
  - ECONOMIC PROBLEM [None]
  - PAIN [None]
  - RHEUMATOID ARTHRITIS [None]
  - SCIATIC NERVE INJURY [None]
